FAERS Safety Report 12608570 (Version 1)
Quarter: 2016Q3

REPORT INFORMATION
  Report Type: Spontaneous
  Country: US (occurrence: US)
  Receive Date: 20160729
  Receipt Date: 20160729
  Transmission Date: 20161109
  Serious: Yes (Death)
  Sender: FDA-Public Use
  Company Number: US-BAUSCH-BL-2016-017919

PATIENT
  Age: 66 Year
  Sex: Female

DRUGS (1)
  1. XIFAXAN [Suspect]
     Active Substance: RIFAXIMIN
     Indication: INFECTION
     Route: 048
     Dates: start: 2016

REACTIONS (4)
  - Cerebral haemorrhage [Fatal]
  - Hepatic cirrhosis [Fatal]
  - Coma [Fatal]
  - Off label use [Unknown]

NARRATIVE: CASE EVENT DATE: 20160710
